FAERS Safety Report 4528517-X (Version None)
Quarter: 2004Q4

REPORT INFORMATION
  Report Type: 
  Country: None (occurrence: None)
  Receive Date: 20041216
  Receipt Date: 20040331
  Transmission Date: 20050328
  Serious: No
  Sender: FDA-Public Use
  Company Number: US-BRISTOL-MYERS SQUIBB COMPANY-12548483

PATIENT
  Age: 56 Year
  Sex: Female

DRUGS (1)
  1. QUESTRAN [Suspect]
     Indication: DIARRHOEA
     Route: 048

REACTIONS (1)
  - DIARRHOEA [None]
